FAERS Safety Report 10868337 (Version 1)
Quarter: 2015Q1

REPORT INFORMATION
  Report Type: Spontaneous
  Country: US (occurrence: None)
  Receive Date: 20150220
  Receipt Date: 20150220
  Transmission Date: 20150721
  Serious: Yes (Other)
  Sender: FDA-Public Use
  Company Number: None

PATIENT
  Age: 75 Year
  Sex: Male
  Weight: 75.75 kg

DRUGS (13)
  1. PRECISIONGLIDE NEEDLE SYRINGE [Concomitant]
  2. OMEPRAZOLE. [Concomitant]
     Active Substance: OMEPRAZOLE
  3. FUROSEMIDE. [Concomitant]
     Active Substance: FUROSEMIDE
  4. RIVAROXABAN 20 MG JANSSEN [Suspect]
     Active Substance: RIVAROXABAN
     Indication: ATRIAL FIBRILLATION
     Route: 048
     Dates: start: 20131022, end: 20150217
  5. CYANOCOBALAMIN. [Concomitant]
     Active Substance: CYANOCOBALAMIN
  6. BD LUER-LOK [Concomitant]
  7. PHENERGAN [Concomitant]
     Active Substance: PROMETHAZINE HYDROCHLORIDE
  8. XARELTO [Concomitant]
     Active Substance: RIVAROXABAN
  9. CITALOPRAM HYDROBROMIDE. [Concomitant]
     Active Substance: CITALOPRAM HYDROBROMIDE
  10. MORPHINE SULFATE. [Concomitant]
     Active Substance: MORPHINE SULFATE
  11. HALCION [Concomitant]
     Active Substance: TRIAZOLAM
  12. LISINOPRIL. [Concomitant]
     Active Substance: LISINOPRIL
  13. ASPIRIN (ASA) [Concomitant]

REACTIONS (3)
  - Pemphigoid [None]
  - Haematuria [None]
  - Muscle spasms [None]

NARRATIVE: CASE EVENT DATE: 20150216
